FAERS Safety Report 8263905-X (Version None)
Quarter: 2012Q2

REPORT INFORMATION
  Report Type: 
  Country: None (occurrence: None)
  Receive Date: 20120406
  Receipt Date: 20120330
  Transmission Date: 20120825
  Serious: Yes (Death)
  Sender: FDA-Public Use
  Company Number: JP-BRISTOL-MYERS SQUIBB COMPANY-16487399

PATIENT
  Age: 74 Year
  Sex: Male

DRUGS (8)
  1. METFORMIN HCL [Suspect]
     Indication: DIABETES MELLITUS
     Route: 048
     Dates: start: 20110502
  2. PROMACTA [Concomitant]
     Indication: GASTRIC ULCER
     Route: 048
     Dates: start: 20070217
  3. EPALRESTAT [Concomitant]
     Indication: DIABETIC NEUROPATHY
     Dosage: KINEX
     Route: 048
     Dates: start: 20070511
  4. CALBLOCK [Concomitant]
     Indication: HYPERTENSION
     Route: 048
     Dates: start: 20081031
  5. TAMIFLU [Concomitant]
     Indication: INFLUENZA
     Dosage: CAP
     Route: 048
     Dates: start: 20120207
  6. METOPROLOL TARTRATE [Concomitant]
     Indication: HYPERTENSION
     Route: 048
  7. URSO 250 [Concomitant]
     Indication: HEPATIC CIRRHOSIS
     Route: 048
     Dates: start: 20070220
  8. ROXATIDINE ACETATE HCL [Concomitant]
     Indication: GASTRIC ULCER
     Route: 048
     Dates: start: 20070330

REACTIONS (3)
  - INFLUENZA [None]
  - PNEUMONIA PNEUMOCOCCAL [None]
  - RESPIRATORY FAILURE [None]
